FAERS Safety Report 6314373-6 (Version None)
Quarter: 2009Q3

REPORT INFORMATION
  Report Type: 
  Country: None (occurrence: None)
  Receive Date: 20090817
  Receipt Date: 20090817
  Transmission Date: 20100115
  Serious: Yes (Other)
  Sender: FDA-Public Use
  Company Number: None

PATIENT
  Age: 29 Year
  Sex: Male
  Weight: 98.4306 kg

DRUGS (2)
  1. PAROXETINE HCL [Suspect]
     Indication: DEPRESSION
     Dosage: 20 MG 1 A DAY PO
     Route: 048
     Dates: start: 20090727, end: 20090814
  2. COFFEE/CAFFEINE [Suspect]
     Dosage: ANY AMOUNT MAYBE 1 A DAY PO
     Route: 048
     Dates: start: 20070101, end: 20090814

REACTIONS (2)
  - AGITATION [None]
  - DEPRESSION [None]
